FAERS Safety Report 7751959-6 (Version None)
Quarter: 2011Q3

REPORT INFORMATION
  Report Type: 
  Country: None (occurrence: None)
  Receive Date: 20110915
  Receipt Date: 20110906
  Transmission Date: 20111222
  Serious: Yes (Other)
  Sender: FDA-Public Use
  Company Number: IT-JNJFOC-20110902562

PATIENT
  Age: 47 Year
  Sex: Male

DRUGS (4)
  1. REMICADE [Suspect]
     Indication: PSORIASIS
     Route: 042
     Dates: start: 20080101, end: 20100101
  2. REMICADE [Suspect]
     Route: 042
     Dates: start: 20080101, end: 20100101
  3. REMICADE [Suspect]
     Indication: PSORIATIC ARTHROPATHY
     Route: 042
     Dates: start: 20110531, end: 20110901
  4. REMICADE [Suspect]
     Route: 042
     Dates: start: 20110531, end: 20110901

REACTIONS (1)
  - NON-HODGKIN'S LYMPHOMA [None]
